FAERS Safety Report 8428957-2 (Version None)
Quarter: 2012Q2

REPORT INFORMATION
  Report Type: 
  Country: None (occurrence: None)
  Receive Date: 20120612
  Receipt Date: 20120606
  Transmission Date: 20120825
  Serious: Yes (Death)
  Sender: FDA-Public Use
  Company Number: IT-ASTELLAS-2012US005364

PATIENT

DRUGS (5)
  1. OXYCONTIN [Concomitant]
     Indication: PRODUCT USED FOR UNKNOWN INDICATION
     Dosage: 80 MG, UNKNOWN/D
     Route: 048
     Dates: start: 20120427, end: 20120604
  2. DELTA-CORTEF [Concomitant]
     Indication: PRODUCT USED FOR UNKNOWN INDICATION
     Dosage: UNK
     Route: 048
     Dates: start: 20120427, end: 20120604
  3. TARCEVA [Suspect]
     Indication: NON-SMALL CELL LUNG CANCER
     Dosage: 150 MG, UNKNOWN/D
     Route: 048
     Dates: start: 20120406, end: 20120603
  4. IBUPROFEN [Concomitant]
     Indication: PRODUCT USED FOR UNKNOWN INDICATION
     Dosage: 1800 MG, UNKNOWN/D
     Route: 048
     Dates: start: 20120427, end: 20120604
  5. LANSOPRAZOLE [Concomitant]
     Indication: PRODUCT USED FOR UNKNOWN INDICATION
     Dosage: 30 MG, UNKNOWN/D
     Route: 048
     Dates: start: 20120427, end: 20120604

REACTIONS (2)
  - HAEMOPTYSIS [None]
  - DYSPNOEA [None]
